FAERS Safety Report 8458807-X (Version None)
Quarter: 2012Q2

REPORT INFORMATION
  Report Type: 
  Country: None (occurrence: None)
  Receive Date: 20120622
  Receipt Date: 20120614
  Transmission Date: 20120825
  Serious: Yes (Other)
  Sender: FDA-Public Use
  Company Number: US-MPIJNJ-2012-04247

PATIENT
  Age: 57 Year
  Sex: Female
  Weight: 72.4 kg

DRUGS (4)
  1. CISPLATIN [Suspect]
     Indication: HEAD AND NECK CANCER
     Dosage: UNK
  2. VELCADE [Suspect]
     Indication: HEAD AND NECK CANCER
     Dosage: 1.3 MG/M2, CYCLIC
     Route: 040
     Dates: start: 20090413, end: 20090514
  3. CETUXIMAB [Suspect]
     Indication: HEAD AND NECK CANCER
     Dosage: 400 MG/M2, CYCLIC
     Route: 042
     Dates: start: 20090413
  4. CETUXIMAB [Suspect]
     Dosage: 250 MG/M2, CYCLIC
     Route: 042
     Dates: end: 20090518

REACTIONS (4)
  - PERIPHERAL SENSORY NEUROPATHY [None]
  - OSTEONECROSIS OF JAW [None]
  - PERIPHERAL MOTOR NEUROPATHY [None]
  - CELLULITIS [None]
